FAERS Safety Report 7385283-0 (Version None)
Quarter: 2011Q1

REPORT INFORMATION
  Report Type: 
  Country: None (occurrence: None)
  Receive Date: 20110330
  Receipt Date: 20100401
  Transmission Date: 20110831
  Serious: No
  Sender: FDA-Public Use
  Company Number: US-MYLANLABS-2010S1005678

PATIENT
  Age: 65 Year
  Sex: Female

DRUGS (5)
  1. CLONAZEPAM [Concomitant]
     Indication: INSOMNIA
     Route: 048
  2. EMSAM [Suspect]
     Indication: DEPRESSION
     Route: 062
     Dates: start: 20100301, end: 20100331
  3. 5-HYDROXYTRYPTOPHAN [Concomitant]
     Indication: INSOMNIA
     Route: 048
  4. LYRICA [Concomitant]
     Indication: CONGENITAL NEUROPATHY
     Route: 048
  5. SAM-E [Concomitant]
     Indication: INSOMNIA
     Route: 048

REACTIONS (2)
  - DRUG INEFFECTIVE [None]
  - DEPRESSION [None]
